FAERS Safety Report 8458502-7 (Version None)
Quarter: 2012Q2

REPORT INFORMATION
  Report Type: 
  Country: None (occurrence: None)
  Receive Date: 20120615
  Receipt Date: 20120601
  Transmission Date: 20120825
  Serious: Yes (Life-Threatening)
  Sender: FDA-Public Use
  Company Number: NGX_00911_2012

PATIENT
  Sex: Male
  Weight: 90 kg

DRUGS (5)
  1. EMLA [Concomitant]
  2. QUTENZA [Suspect]
     Indication: COMPLEX REGIONAL PAIN SYNDROME
     Dosage: (DF [PATCH, APPLIED TO THE RIGHT ELBOW] TOPICAL)
     Route: 061
     Dates: start: 20111121, end: 20111121
  3. AMITRIPTYLINE HCL [Concomitant]
  4. PALEXIA [Concomitant]
  5. NARATRIPTAN [Concomitant]

REACTIONS (6)
  - SUBARACHNOID HAEMORRHAGE [None]
  - RUPTURED CEREBRAL ANEURYSM [None]
  - CEREBROVASCULAR DISORDER [None]
  - CIRCULATORY COLLAPSE [None]
  - HEADACHE [None]
  - CEREBRAL HAEMORRHAGE [None]
